FAERS Safety Report 17548709 (Version 1)
Quarter: 2020Q1

REPORT INFORMATION
  Report Type: Spontaneous
  Country: US (occurrence: US)
  Receive Date: 20200317
  Receipt Date: 20200317
  Transmission Date: 20200409
  Serious: No
  Sender: FDA-Public Use
  Company Number: US-ALLERGAN-1907430US

PATIENT
  Sex: Female
  Weight: 58.96 kg

DRUGS (6)
  1. SIMVASTATIN. [Suspect]
     Active Substance: SIMVASTATIN
     Indication: PRODUCT USED FOR UNKNOWN INDICATION
     Dosage: UNK
     Route: 065
  2. CYMBALTA [Concomitant]
     Active Substance: DULOXETINE HYDROCHLORIDE
  3. NORCO [Suspect]
     Active Substance: ACETAMINOPHEN\HYDROCODONE BITARTRATE
     Indication: PRODUCT USED FOR UNKNOWN INDICATION
     Dosage: 1 DF, Q4-6H PRN
     Route: 048
     Dates: start: 20150928
  4. NORCO [Suspect]
     Active Substance: ACETAMINOPHEN\HYDROCODONE BITARTRATE
     Dosage: 1 DF, Q4-6H PRN
     Route: 048
     Dates: start: 20160118
  5. LYRICA [Suspect]
     Active Substance: PREGABALIN
     Indication: PRODUCT USED FOR UNKNOWN INDICATION
     Dosage: 1 DF, TID
     Route: 048
     Dates: start: 20150928
  6. XANAX [Suspect]
     Active Substance: ALPRAZOLAM
     Indication: PRODUCT USED FOR UNKNOWN INDICATION
     Dosage: UNK
     Route: 065

REACTIONS (30)
  - Musculoskeletal chest pain [Unknown]
  - Arthritis [Unknown]
  - Muscle spasms [Unknown]
  - Chills [Unknown]
  - Muscular weakness [Unknown]
  - Back pain [Unknown]
  - Weight increased [Unknown]
  - Fibromyalgia [Unknown]
  - Arthralgia [Unknown]
  - Libido decreased [Unknown]
  - Gait disturbance [Unknown]
  - Headache [Unknown]
  - Anxiety [Unknown]
  - Flatulence [Unknown]
  - Asthenia [Unknown]
  - Abdominal pain [Unknown]
  - Abdominal distension [Unknown]
  - Joint swelling [Unknown]
  - Malaise [Unknown]
  - Myalgia [Unknown]
  - Depression [Unknown]
  - Pain in extremity [Unknown]
  - Musculoskeletal stiffness [Unknown]
  - Sinusitis [Unknown]
  - Increased tendency to bruise [Unknown]
  - Temperature intolerance [Unknown]
  - Anaemia [Unknown]
  - Fatigue [Unknown]
  - Sleep disorder [Unknown]
  - Constipation [Unknown]
